FAERS Safety Report 9757380 (Version 1)
Quarter: 2013Q4

REPORT INFORMATION
  Report Type: Spontaneous
  Country: FR (occurrence: FR)
  Receive Date: 20131214
  Receipt Date: 20131214
  Transmission Date: 20140711
  Serious: Yes (Hospitalization, Other)
  Sender: FDA-Public Use
  Company Number: FR-IPSEN BIOPHARMACEUTICALS, INC.-2013-5519

PATIENT
  Age: 27 Year
  Sex: 0

DRUGS (2)
  1. SOMATULINE LP 30MG [Suspect]
     Indication: INTESTINAL OBSTRUCTION
     Dosage: 60 MG (TWO 30 MG DOSES ADMINISTERED)
     Route: 030
     Dates: start: 20131001
  2. SOMATULINE LP 30MG [Suspect]
     Indication: OFF LABEL USE

REACTIONS (2)
  - Intestinal obstruction [Unknown]
  - Drug dispensing error [Unknown]
